FAERS Safety Report 7346725-X (Version None)
Quarter: 2011Q1

REPORT INFORMATION
  Report Type: 
  Country: None (occurrence: None)
  Receive Date: 20110302
  Receipt Date: 20110220
  Transmission Date: 20110831
  Serious: Yes (Hospitalization)
  Sender: FDA-Public Use
  Company Number: 027835

PATIENT
  Sex: Male
  Weight: 67 kg

DRUGS (3)
  1. LEVETIRACETAM [Concomitant]
  2. LAMOTRIGINE [Concomitant]
  3. LACOSAMIDE [Suspect]
     Indication: EPILEPSY
     Dosage: 200 MG BID ORAL
     Route: 048
     Dates: start: 20100330

REACTIONS (2)
  - DRUG DOSE OMISSION [None]
  - EPILEPSY [None]
